FAERS Safety Report 23999380 (Version 2)
Quarter: 2024Q3

REPORT INFORMATION
  Report Type: Spontaneous
  Country: HU (occurrence: HU)
  Receive Date: 20240621
  Receipt Date: 20240702
  Transmission Date: 20241016
  Serious: Yes (Life-Threatening)
  Sender: BAUSCH AND LOMB
  Company Number: HU-AMGEN-HUNSP2024111645

PATIENT
  Age: 46 Year
  Sex: Male

DRUGS (7)
  1. DEXAMETHASONE [Suspect]
     Active Substance: DEXAMETHASONE
     Indication: Plasma cell myeloma
     Dosage: BORTEZOMIB-CYCLOPHOSPHAMIDE-DEXAMETHASONE (ZCD) THERAPY
     Route: 065
  2. DEXAMETHASONE [Suspect]
     Active Substance: DEXAMETHASONE
     Indication: Plasma cell myeloma
     Dosage: CCD REGIMEN (CARFILZOMIB-CYCLOPHOSPHAMIDE-DEXAMETHASONE)
     Route: 065
  3. CARFILZOMIB [Suspect]
     Active Substance: CARFILZOMIB
     Indication: Plasma cell myeloma
     Dosage: CARFILZOMIB-CYCLOPHOSPHAMIDE-DEXAMETHASONE (CCD)
     Route: 065
  4. CYCLOPHOSPHAMIDE [Suspect]
     Active Substance: CYCLOPHOSPHAMIDE
     Indication: Plasma cell myeloma
     Dosage: CARFILZOMIB-CYCLOPHOSPHAMIDE-DEXAMETHASONE (CCD); BORTEZOMIB-CYCLOPHOSPHAMIDE-DEXAMETHASONE (ZCD)
     Route: 065
  5. BORTEZOMIB [Suspect]
     Active Substance: BORTEZOMIB
     Indication: Plasma cell myeloma
     Dosage: BORTEZOMIB-CYCLOPHOSPHAMIDE-DEXAMETHASONE (ZCD) THERAPY
     Route: 065
  6. AZATHIOPRINE [Concomitant]
     Active Substance: AZATHIOPRINE
     Indication: Lymphadenopathy
     Route: 065
  7. HUMAN IMMUNOGLOBULIN G [Concomitant]
     Active Substance: HUMAN IMMUNOGLOBULIN G
     Indication: Quadriparesis
     Route: 042

REACTIONS (1)
  - Therapy partial responder [Unknown]
